FAERS Safety Report 10028311 (Version 1)
Quarter: 2014Q1

REPORT INFORMATION
  Report Type: Spontaneous
  Country: US (occurrence: None)
  Receive Date: 20140318
  Receipt Date: 20140318
  Transmission Date: 20141002
  Serious: Yes (Congenital Anomaly, Other)
  Sender: FDA-Public Use
  Company Number: 2014AP001935

PATIENT
  Sex: 0

DRUGS (2)
  1. LAMOTRIGINE [Suspect]
     Route: 064
  2. VALPROIC ACID [Suspect]
     Route: 064

REACTIONS (4)
  - Congenital cystic kidney disease [None]
  - Cryptorchism [None]
  - Congenital anomaly [None]
  - Maternal drugs affecting foetus [None]
